FAERS Safety Report 9172297 (Version 2)
Quarter: 2013Q2

REPORT INFORMATION
  Report Type: Report from Study
  Country: US (occurrence: US)
  Receive Date: 20130319
  Receipt Date: 20130426
  Transmission Date: 20140414
  Serious: Yes (Hospitalization, Other)
  Sender: FDA-Public Use
  Company Number: US-GENZYME-CAMP-1002791

PATIENT
  Age: 33 Year
  Sex: Female
  Weight: 52.61 kg

DRUGS (4)
  1. ALEMTUZUMAB [Suspect]
     Indication: MULTIPLE SCLEROSIS
     Dosage: UNK UNK, UNK
     Route: 065
  2. LACTATED RINGER^S [Concomitant]
     Indication: PRODUCT USED FOR UNKNOWN INDICATION
     Dosage: 10 ML, Q1HR
     Route: 042
     Dates: start: 20130125, end: 20130125
  3. ANCEF [Concomitant]
     Indication: PRODUCT USED FOR UNKNOWN INDICATION
     Dosage: 1 G, ONCE
     Route: 042
     Dates: start: 20130125, end: 20130125
  4. COLACE [Concomitant]
     Indication: CONSTIPATION
     Dosage: 100 MG, PRN

REACTIONS (1)
  - Malignant melanoma [Recovered/Resolved]
